FAERS Safety Report 9162841 (Version 2)
Quarter: 2013Q2

REPORT INFORMATION
  Report Type: Spontaneous
  Country: US (occurrence: None)
  Receive Date: 20130227
  Receipt Date: 20130422
  Transmission Date: 20140414
  Serious: Yes (Hospitalization, Other)
  Sender: FDA-Public Use
  Company Number: CRC-13-134

PATIENT
  Age: 46 Year
  Sex: Female
  Weight: 72.3 kg

DRUGS (5)
  1. VECURONIUM BROMIDE [Suspect]
     Indication: SURGERY
     Route: 042
     Dates: start: 20130130
  2. ROCURONIUM BROMIDE [Suspect]
     Indication: SURGERY
     Route: 042
     Dates: start: 20130130
  3. SUCCINYLCHOLINE [Suspect]
     Indication: SURGERY
     Route: 042
  4. ROCURONIUM BROMIDE FOR INJ [Concomitant]
  5. SUCCINYLCHOLINE INJ. [Concomitant]

REACTIONS (4)
  - Asthenia [None]
  - Delayed recovery from anaesthesia [None]
  - Hypotonia [None]
  - Drug effect increased [None]
